FAERS Safety Report 21300853 (Version 1)
Quarter: 2022Q3

REPORT INFORMATION
  Report Type: Spontaneous
  Country: ES (occurrence: ES)
  Receive Date: 20220907
  Receipt Date: 20220907
  Transmission Date: 20221027
  Serious: Yes (Other)
  Sender: FDA-Public Use
  Company Number: None

PATIENT
  Age: 76 Year
  Sex: Male

DRUGS (3)
  1. GABAPENTIN [Interacting]
     Active Substance: GABAPENTIN
     Indication: Product used for unknown indication
     Dosage: (2641A), UNIT DOSE: 600 MG, FREQUENCY TIME-8 HRS, DURATION-2 DAYS
     Dates: start: 20220531, end: 20220601
  2. MIDAZOLAM [Interacting]
     Active Substance: MIDAZOLAM
     Indication: Product used for unknown indication
     Dosage: (2256A), UNIT DOSE: 8 MG, FREQUENCY TIME-1 TOTAL
     Dates: start: 20220530, end: 20220530
  3. ALFENTANIL [Interacting]
     Active Substance: ALFENTANIL
     Indication: Product used for unknown indication
     Dosage: UNIT DOSE: 1 DF, FREQUENCY TIME-72 HRS, DURATION-3 DAYS, (2480A)
     Dates: start: 20220530, end: 20220601

REACTIONS (4)
  - Disorientation [Recovered/Resolved]
  - Depressed level of consciousness [Recovered/Resolved]
  - Hypotension [Recovered/Resolved]
  - Drug interaction [Unknown]

NARRATIVE: CASE EVENT DATE: 20220601
